FAERS Safety Report 7994933-7 (Version None)
Quarter: 2011Q4

REPORT INFORMATION
  Report Type: 
  Country: None (occurrence: None)
  Receive Date: 20111220
  Receipt Date: 20111208
  Transmission Date: 20120403
  Serious: Yes (Other)
  Sender: FDA-Public Use
  Company Number: US-AMGEN-USASP2011066610

PATIENT

DRUGS (1)
  1. ARANESP [Suspect]
     Indication: NEPHROPATHY
     Dosage: UNK

REACTIONS (1)
  - HAEMORRHAGE [None]
